FAERS Safety Report 7443218-6 (Version None)
Quarter: 2011Q2

REPORT INFORMATION
  Report Type: 
  Country: None (occurrence: None)
  Receive Date: 20110428
  Receipt Date: 20110412
  Transmission Date: 20111010
  Serious: Yes (Hospitalization)
  Sender: FDA-Public Use
  Company Number: B0713279A

PATIENT
  Sex: Male

DRUGS (8)
  1. TEGRETOL [Concomitant]
     Dosage: 600MG PER DAY
     Route: 048
  2. FOSFOMYCIN [Suspect]
     Dates: start: 20110120, end: 20110126
  3. ALLEGRA [Concomitant]
     Route: 048
  4. LAMICTAL [Suspect]
     Indication: EPILEPSY
     Dosage: 50MG PER DAY
     Route: 048
     Dates: start: 20110111, end: 20110207
  5. PHENOBAL [Concomitant]
     Dosage: 90MG PER DAY
     Route: 048
  6. RIVOTRIL [Concomitant]
     Dosage: 3MG PER DAY
     Route: 048
  7. EXCEGRAN [Concomitant]
     Dosage: 200MG PER DAY
     Route: 048
  8. LANSOPRAZOLE [Concomitant]
     Dosage: 15MG PER DAY
     Route: 048

REACTIONS (4)
  - DRUG ERUPTION [None]
  - PYREXIA [None]
  - RASH ERYTHEMATOUS [None]
  - C-REACTIVE PROTEIN INCREASED [None]
